FAERS Safety Report 16312532 (Version 2)
Quarter: 2019Q2

REPORT INFORMATION
  Report Type: Report from Study
  Country: CA (occurrence: CA)
  Receive Date: 20190515
  Receipt Date: 20190522
  Transmission Date: 20190711
  Serious: Yes (Other)
  Sender: FDA-Public Use
  Company Number: CA-ROCHE-2172127

PATIENT
  Age: 42 Year
  Sex: Female

DRUGS (3)
  1. ACTEMRA [Suspect]
     Active Substance: TOCILIZUMAB
     Indication: RHEUMATOID ARTHRITIS
     Route: 042
     Dates: start: 20181011
  2. ACTEMRA [Suspect]
     Active Substance: TOCILIZUMAB
     Route: 042
     Dates: start: 20190201, end: 20190201
  3. RITUXAN [Suspect]
     Active Substance: RITUXIMAB
     Indication: PRODUCT USED FOR UNKNOWN INDICATION
     Route: 065

REACTIONS (22)
  - Pneumonia [Not Recovered/Not Resolved]
  - Wound [Recovering/Resolving]
  - Lymphadenopathy [Unknown]
  - Wound infection [Not Recovered/Not Resolved]
  - Body temperature increased [Unknown]
  - Chills [Unknown]
  - Thermal burn [Not Recovered/Not Resolved]
  - Pruritus [Recovered/Resolved]
  - Synovial cyst [Unknown]
  - Cough [Unknown]
  - Buttock injury [Not Recovered/Not Resolved]
  - Oropharyngeal pain [Unknown]
  - Wound complication [Unknown]
  - Nervousness [Unknown]
  - Rales [Unknown]
  - Hot flush [Recovered/Resolved]
  - Infusion related reaction [Recovered/Resolved]
  - Herpes zoster [Not Recovered/Not Resolved]
  - Headache [Not Recovered/Not Resolved]
  - Throat irritation [Recovered/Resolved]
  - Secretion discharge [Not Recovered/Not Resolved]
  - Blood pressure increased [Unknown]

NARRATIVE: CASE EVENT DATE: 20181011
